FAERS Safety Report 23527423 (Version 1)
Quarter: 2024Q1

REPORT INFORMATION
  Report Type: Report from Study
  Country: IT (occurrence: IT)
  Receive Date: 20240215
  Receipt Date: 20240215
  Transmission Date: 20240410
  Serious: Yes (Other)
  Sender: FDA-Public Use
  Company Number: None

PATIENT
  Age: 53 Year
  Sex: Male

DRUGS (3)
  1. FLUOROURACIL [Suspect]
     Active Substance: FLUOROURACIL
     Indication: Colon cancer
     Dosage: 4,206 MG PER CYCLE
     Route: 042
     Dates: start: 20221217, end: 20231128
  2. VEGZELMA [Suspect]
     Active Substance: BEVACIZUMAB-ADCD
     Indication: Rectal adenocarcinoma
     Dosage: 440 MG PER CYCLE
     Route: 042
     Dates: start: 20221217, end: 20231128
  3. IRINOTECAN [Suspect]
     Active Substance: IRINOTECAN
     Indication: Rectal adenocarcinoma
     Dosage: 270 MG PER CYCLE
     Route: 042
     Dates: start: 20221217, end: 20231128

REACTIONS (8)
  - Haematochezia [Recovered/Resolved]
  - Epistaxis [Recovering/Resolving]
  - Stomatitis [Recovering/Resolving]
  - Haemorrhagic diathesis [Recovering/Resolving]
  - Nausea [Recovering/Resolving]
  - Diarrhoea haemorrhagic [Recovered/Resolved]
  - Diarrhoea [Recovered/Resolved]
  - Diarrhoea [Recovered/Resolved]

NARRATIVE: CASE EVENT DATE: 20230102
